FAERS Safety Report 13592319 (Version 1)
Quarter: 2017Q2

REPORT INFORMATION
  Report Type: Spontaneous
  Country: FR (occurrence: FR)
  Receive Date: 20170529
  Receipt Date: 20170529
  Transmission Date: 20170830
  Serious: Yes (Hospitalization, Other)
  Sender: FDA-Public Use
  Company Number: FR-MYLANLABS-2017M1031118

PATIENT

DRUGS (2)
  1. SPIRONOLACTONE/ALTIZIDE MYLAN 25 MG/15 MG, COMPRIM? PELLICUL? S?CABLE [Suspect]
     Active Substance: ALTHIAZIDE\SPIRONOLACTONE
     Indication: HYPERALDOSTERONISM
     Dosage: UNK
     Route: 048
     Dates: start: 20170416
  2. FUROSEMIDE. [Suspect]
     Active Substance: FUROSEMIDE
     Indication: HYPERALDOSTERONISM
     Dosage: 20 MG, UNK
     Route: 048

REACTIONS (3)
  - Arrhythmia [Recovered/Resolved]
  - Hypokalaemia [Recovered/Resolved]
  - Malaise [Recovered/Resolved]

NARRATIVE: CASE EVENT DATE: 201704
